FAERS Safety Report 21028193 (Version 1)
Quarter: 2022Q3

REPORT INFORMATION
  Report Type: Spontaneous
  Country: FR (occurrence: FR)
  Receive Date: 20220630
  Receipt Date: 20220630
  Transmission Date: 20221027
  Serious: Yes (Hospitalization, Congenital Anomaly)
  Sender: FDA-Public Use
  Company Number: None

PATIENT
  Age: 1 Day
  Sex: Male

DRUGS (10)
  1. VALSARTAN [Suspect]
     Active Substance: VALSARTAN
     Indication: Foetal exposure during pregnancy
     Dosage: MATERNAL DOSE: 160 MG QD (STOP DATE 03 SEP 2021)
     Route: 064
  2. SODIUM PHOSPHATE, DIBASIC\SODIUM PHOSPHATE, MONOBASIC [Concomitant]
     Active Substance: SODIUM PHOSPHATE, DIBASIC\SODIUM PHOSPHATE, MONOBASIC
     Indication: Foetal exposure during pregnancy
     Dosage: MATERNAL DOSE: UNKNOWN (SOLUTION RECTALE)
     Route: 064
  3. CHOLECALCIFEROL [Concomitant]
     Active Substance: CHOLECALCIFEROL
     Indication: Foetal exposure during pregnancy
     Dosage: MATERNAL DOSE: 1 DF, QMO, DRUG STOPPED ON 03 SEP 2021
     Route: 064
  4. AMLODIPINE\INDAPAMIDE [Concomitant]
     Active Substance: AMLODIPINE\INDAPAMIDE
     Indication: Foetal exposure during pregnancy
     Dosage: MATERNAL DOSE: STRENGTH: 1,5 MG/10 MG, 1 DF QD (STOP DATE 03 SEP 2021)
     Route: 064
  5. PANTOPRAZOLE [Concomitant]
     Active Substance: PANTOPRAZOLE
     Indication: Foetal exposure during pregnancy
     Dosage: MATERNAL DOSE:  40 MG, QD (STOP DATE 03 SEP 2021)
     Route: 064
  6. TRIMEBUTINE MALEATE [Concomitant]
     Active Substance: TRIMEBUTINE MALEATE
     Indication: Foetal exposure during pregnancy
     Dosage: MATERNAL DOSE: 100 MG
     Route: 064
  7. DESOGESTREL [Concomitant]
     Active Substance: DESOGESTREL
     Indication: Foetal exposure during pregnancy
     Dosage: MATERNAL DOSE: 1 DOSAGE FORM, QD (STOP DATE 03 SEP 2021)
     Route: 064
  8. POLYETHYLENE GLYCOL 4000 [Concomitant]
     Active Substance: POLYETHYLENE GLYCOL 4000
     Indication: Foetal exposure during pregnancy
     Dosage: MATERNAL DOSE: 10 G
     Route: 064
  9. CARBOSYMAG [Concomitant]
     Indication: Foetal exposure during pregnancy
     Dosage: MATERNAL DOSE: 1 DOSAGE FORM, PER 3 DAY (STOP DATE 03 SEP 2021)
     Route: 064
  10. MINERAL OIL [Concomitant]
     Active Substance: MINERAL OIL
     Indication: Foetal exposure during pregnancy
     Dosage: MATERNAL DOSE: UNK (STOP DATE 03 SEP 2021)
     Route: 064

REACTIONS (3)
  - Renal failure neonatal [Recovering/Resolving]
  - Microcephaly [Not Recovered/Not Resolved]
  - Congenital multiplex arthrogryposis [Not Recovered/Not Resolved]

NARRATIVE: CASE EVENT DATE: 20210901
